FAERS Safety Report 6406257-X (Version None)
Quarter: 2009Q4

REPORT INFORMATION
  Report Type: 
  Country: None (occurrence: None)
  Receive Date: 20091019
  Receipt Date: 20091007
  Transmission Date: 20100525
  Serious: Yes (Other)
  Sender: FDA-Public Use
  Company Number: PHEH2009US13357

PATIENT
  Sex: Male

DRUGS (7)
  1. EXJADE [Suspect]
     Indication: MYELODYSPLASTIC SYNDROME
     Dosage: 1750 MG/H, QD
     Route: 048
     Dates: start: 20090805
  2. EXJADE [Suspect]
     Indication: LIPIDOSIS
  3. LEVOTHYROXINE SODIUM [Concomitant]
  4. PRILOSEC [Concomitant]
  5. ACTOS [Concomitant]
  6. FLOMAX [Concomitant]
  7. ALLOPURINOL [Concomitant]

REACTIONS (3)
  - LEUKAEMIA [None]
  - LIVER DISORDER [None]
  - RENAL FAILURE [None]
